FAERS Safety Report 17867946 (Version 2)
Quarter: 2020Q3

REPORT INFORMATION
  Report Type: Report from Study
  Country: AE (occurrence: AE)
  Receive Date: 20200605
  Receipt Date: 20200901
  Transmission Date: 20201103
  Serious: Yes (Hospitalization)
  Sender: FDA-Public Use
  Company Number: AE-SEATTLE GENETICS-2020SGN02249

PATIENT
  Sex: Female

DRUGS (1)
  1. BRENTUXIMAB VEDOTIN [Suspect]
     Active Substance: BRENTUXIMAB VEDOTIN
     Indication: HODGKIN^S DISEASE
     Dosage: 50 MILLIGRAM, Q3WEEKS
     Route: 042
     Dates: start: 20200423, end: 20200822

REACTIONS (2)
  - Surgery [Unknown]
  - Poor venous access [Unknown]
